FAERS Safety Report 9806154 (Version 3)
Quarter: 2014Q1

REPORT INFORMATION
  Report Type: Spontaneous
  Country: US (occurrence: US)
  Receive Date: 20140109
  Receipt Date: 20140224
  Transmission Date: 20141002
  Serious: Yes (Hospitalization)
  Sender: FDA-Public Use
  Company Number: US-PFIZER INC-2014001755

PATIENT
  Age: 59 Year
  Sex: Male
  Weight: 84.35 kg

DRUGS (2)
  1. VFEND [Suspect]
     Indication: PULMONARY MYCOSIS
     Dosage: 200 MG, 2X/DAY
     Route: 048
     Dates: start: 20130613
  2. VFEND [Suspect]
     Dosage: ONE TABLET EVERY MORNING AND HALF TABLET EVERY EVENING
     Route: 048

REACTIONS (4)
  - Lung disorder [Unknown]
  - Body temperature increased [Unknown]
  - Asthenia [Unknown]
  - Wrong technique in drug usage process [Unknown]
